FAERS Safety Report 6007822-4 (Version None)
Quarter: 2008Q4

REPORT INFORMATION
  Report Type: 
  Country: None (occurrence: None)
  Receive Date: 20081217
  Receipt Date: 20080630
  Transmission Date: 20090506
  Serious: No
  Sender: FDA-Public Use
  Company Number: US-ASTRAZENECA-2008UW13137

PATIENT
  Age: 77 Year
  Sex: Male
  Weight: 86.2 kg

DRUGS (8)
  1. CRESTOR [Suspect]
     Indication: BLOOD CHOLESTEROL INCREASED
     Route: 048
     Dates: start: 20060601, end: 20071201
  2. CRESTOR [Suspect]
     Route: 048
     Dates: start: 20080101
  3. LISINOPRIL [Concomitant]
  4. METOPROLOL TARTRATE [Concomitant]
  5. ASPIRIN [Concomitant]
  6. CO-Q10 [Concomitant]
     Dates: start: 20050101
  7. CALCIUM [Concomitant]
  8. LOVAZA [Concomitant]

REACTIONS (3)
  - BLOOD CHOLESTEROL INCREASED [None]
  - CAROTID ARTERY DISEASE [None]
  - HAIR COLOUR CHANGES [None]
